FAERS Safety Report 19129999 (Version 3)
Quarter: 2021Q2

REPORT INFORMATION
  Report Type: Report from Study
  Country: None (occurrence: US)
  Receive Date: 20210414
  Receipt Date: 20210527
  Transmission Date: 20210717
  Serious: Yes (Other)
  Sender: FDA-Public Use
  Company Number: US-ABBVIE-21K-163-3852027-00

PATIENT
  Age: 8 Year
  Sex: Male
  Weight: 44.1 kg

DRUGS (7)
  1. HUMIRA [Suspect]
     Active Substance: ADALIMUMAB
     Dosage: DAY 15
     Route: 058
     Dates: start: 20210216, end: 20210216
  2. HUMIRA [Suspect]
     Active Substance: ADALIMUMAB
     Indication: CROHN^S DISEASE
     Route: 058
     Dates: start: 20210303, end: 202104
  3. HUMIRA [Suspect]
     Active Substance: ADALIMUMAB
     Dosage: COUPLE OF MONTHS AGO
     Route: 058
     Dates: start: 2021
  4. MESALAMINE. [Concomitant]
     Active Substance: MESALAMINE
     Indication: CROHN^S DISEASE
  5. METHOTREXATE. [Concomitant]
     Active Substance: METHOTREXATE
     Indication: CROHN^S DISEASE
  6. FOLIC ACID. [Concomitant]
     Active Substance: FOLIC ACID
     Indication: CROHN^S DISEASE
  7. HUMIRA [Suspect]
     Active Substance: ADALIMUMAB
     Indication: CROHN^S DISEASE
     Dosage: DAY 1
     Route: 058
     Dates: start: 20210202, end: 20210202

REACTIONS (16)
  - Anxiety [Unknown]
  - Abdominal pain upper [Unknown]
  - Skin infection [Recovered/Resolved]
  - Depression [Unknown]
  - Skin disorder [Unknown]
  - Exposure to toxic agent [Recovered/Resolved]
  - Loss of personal independence in daily activities [Unknown]
  - Vomiting [Unknown]
  - Autism spectrum disorder [Unknown]
  - Behaviour disorder [Unknown]
  - Decreased appetite [Unknown]
  - Staphylococcal infection [Unknown]
  - Device issue [Unknown]
  - Malaise [Unknown]
  - Diarrhoea [Unknown]
  - Suicidal ideation [Unknown]

NARRATIVE: CASE EVENT DATE: 2021
